FAERS Safety Report 24842152 (Version 1)
Quarter: 2025Q1

REPORT INFORMATION
  Report Type: Spontaneous
  Country: CA (occurrence: CA)
  Receive Date: 20250115
  Receipt Date: 20250115
  Transmission Date: 20250409
  Serious: Yes (Death, Life-Threatening, Hospitalization, Disabling, Congenital Anomaly, Other)
  Sender: TEVA
  Company Number: CA-TEVA-VS-3285693

PATIENT
  Age: 43 Year
  Sex: Female
  Weight: 96 kg

DRUGS (12)
  1. LAMOTRIGINE [Suspect]
     Active Substance: LAMOTRIGINE
     Indication: Product used for unknown indication
     Route: 065
  2. LAMOTRIGINE [Suspect]
     Active Substance: LAMOTRIGINE
     Indication: Product used for unknown indication
     Route: 048
  3. LAMOTRIGINE [Suspect]
     Active Substance: LAMOTRIGINE
     Indication: Product used for unknown indication
     Route: 048
  4. TRETINOIN [Suspect]
     Active Substance: TRETINOIN
     Indication: Product used for unknown indication
     Route: 065
  5. NUCALA [Suspect]
     Active Substance: MEPOLIZUMAB
     Indication: Product used for unknown indication
     Route: 065
  6. COSENTYX [Suspect]
     Active Substance: SECUKINUMAB
     Indication: Rheumatoid arthritis
     Route: 005
  7. COSENTYX [Suspect]
     Active Substance: SECUKINUMAB
     Indication: Rheumatoid arthritis
     Route: 065
  8. AIMOVIG [Suspect]
     Active Substance: ERENUMAB-AOOE
     Indication: Rheumatoid arthritis
     Route: 065
  9. AIMOVIG [Suspect]
     Active Substance: ERENUMAB-AOOE
     Indication: Rheumatoid arthritis
     Route: 065
  10. AIMOVIG [Suspect]
     Active Substance: ERENUMAB-AOOE
     Indication: Rheumatoid arthritis
     Route: 065
  11. DICLOFENAC POTASSIUM [Suspect]
     Active Substance: DICLOFENAC POTASSIUM
     Indication: Psoriasis
     Route: 065
  12. LAMICTAL [Suspect]
     Active Substance: LAMOTRIGINE
     Indication: Product used for unknown indication
     Route: 048

REACTIONS (117)
  - Abdominal discomfort [Fatal]
  - Blister [Fatal]
  - Autoimmune disorder [Fatal]
  - Arthropathy [Fatal]
  - Back injury [Fatal]
  - Confusional state [Fatal]
  - Dislocation of vertebra [Fatal]
  - Gastrointestinal disorder [Fatal]
  - Infection [Fatal]
  - Drug ineffective [Fatal]
  - Arthralgia [Fatal]
  - Dry mouth [Fatal]
  - Liver injury [Fatal]
  - C-reactive protein increased [Fatal]
  - Weight increased [Fatal]
  - Depression [Fatal]
  - Drug intolerance [Fatal]
  - Peripheral swelling [Fatal]
  - Wheezing [Fatal]
  - Infusion site reaction [Fatal]
  - Hypoaesthesia [Fatal]
  - Hypertension [Fatal]
  - Dyspnoea [Fatal]
  - Therapeutic product effect incomplete [Fatal]
  - Pain in extremity [Fatal]
  - Muscular weakness [Fatal]
  - Headache [Fatal]
  - Joint swelling [Fatal]
  - General physical health deterioration [Fatal]
  - Hand deformity [Fatal]
  - Neck pain [Fatal]
  - Asthenia [Fatal]
  - Synovitis [Fatal]
  - Nausea [Fatal]
  - Adverse drug reaction [Fatal]
  - Anxiety [Fatal]
  - Alopecia [Fatal]
  - Mobility decreased [Fatal]
  - Contusion [Fatal]
  - Hepatic enzyme increased [Fatal]
  - Blood cholesterol increased [Fatal]
  - Urticaria [Fatal]
  - Exposure during pregnancy [Fatal]
  - Adverse event [Fatal]
  - Glossodynia [Fatal]
  - Taste disorder [Fatal]
  - Swelling [Fatal]
  - Night sweats [Fatal]
  - Pericarditis [Fatal]
  - Maternal exposure during pregnancy [Fatal]
  - Off label use [Fatal]
  - Product quality issue [Fatal]
  - Injury [Fatal]
  - Fatigue [Fatal]
  - Asthma [Fatal]
  - Dizziness [Fatal]
  - Psoriatic arthropathy [Fatal]
  - Lower respiratory tract infection [Fatal]
  - Condition aggravated [Fatal]
  - Lip dry [Fatal]
  - Duodenal ulcer perforation [Fatal]
  - Abdominal pain upper [Fatal]
  - Rheumatoid arthritis [Fatal]
  - Blepharospasm [Fatal]
  - Abdominal pain [Fatal]
  - Paraesthesia [Fatal]
  - Osteoarthritis [Fatal]
  - Onychomadesis [Fatal]
  - Breast cancer stage III [Fatal]
  - Product use in unapproved indication [Fatal]
  - Live birth [Fatal]
  - Product use issue [Fatal]
  - Gastrooesophageal reflux disease [Fatal]
  - Nasopharyngitis [Fatal]
  - Type 2 diabetes mellitus [Fatal]
  - Drug hypersensitivity [Fatal]
  - Lung disorder [Fatal]
  - Musculoskeletal pain [Fatal]
  - Diarrhoea [Fatal]
  - Therapeutic product effect decreased [Fatal]
  - Nail disorder [Fatal]
  - Systemic lupus erythematosus [Fatal]
  - Infusion related reaction [Fatal]
  - Muscle spasms [Fatal]
  - Wound [Fatal]
  - Rash [Fatal]
  - Wound infection [Fatal]
  - Vomiting [Fatal]
  - Impaired healing [Fatal]
  - Muscle injury [Fatal]
  - Hypercholesterolaemia [Fatal]
  - Inflammation [Fatal]
  - Folliculitis [Fatal]
  - Contraindicated product administered [Fatal]
  - Obesity [Fatal]
  - Irritable bowel syndrome [Fatal]
  - Gait inability [Fatal]
  - Bursitis [Fatal]
  - Memory impairment [Fatal]
  - Treatment failure [Fatal]
  - Epilepsy [Fatal]
  - Peripheral venous disease [Fatal]
  - Pemphigus [Fatal]
  - Helicobacter infection [Fatal]
  - Facet joint syndrome [Fatal]
  - Deep vein thrombosis postoperative [Fatal]
  - Pain [Fatal]
  - Liver function test increased [Fatal]
  - Joint range of motion decreased [Fatal]
  - Anti-cyclic citrullinated peptide antibody positive [Fatal]
  - Decreased appetite [Fatal]
  - Migraine [Fatal]
  - Discomfort [Fatal]
  - Stomatitis [Fatal]
  - Intentional product use issue [Fatal]
  - C-reactive protein abnormal [Fatal]
  - Fibromyalgia [Fatal]
